FAERS Safety Report 18635948 (Version 1)
Quarter: 2020Q4

REPORT INFORMATION
  Report Type: Other
  Country: US (occurrence: US)
  Receive Date: 20201218
  Receipt Date: 20201218
  Transmission Date: 20210114
  Serious: Yes (Hospitalization)
  Sender: FDA-Public Use
  Company Number: US-ROCHE-2729347

PATIENT
  Age: 64 Year
  Sex: Male

DRUGS (1)
  1. OCREVUS [Suspect]
     Active Substance: OCRELIZUMAB
     Indication: MULTIPLE SCLEROSIS
     Dosage: 1ST SPLIT DOSE ;ONGOING: NO
     Route: 065
     Dates: start: 20201105, end: 20201119

REACTIONS (3)
  - COVID-19 [Not Recovered/Not Resolved]
  - Gastric disorder [Unknown]
  - Pruritus [Recovered/Resolved]

NARRATIVE: CASE EVENT DATE: 20201105
